FAERS Safety Report 26169603 (Version 1)
Quarter: 2025Q4

REPORT INFORMATION
  Report Type: Spontaneous
  Country: US (occurrence: None)
  Receive Date: 20251216
  Receipt Date: 20251216
  Transmission Date: 20260118
  Serious: No
  Sender: FDA-CTU
  Company Number: None

PATIENT
  Age: 7 Month
  Sex: Female
  Weight: 10.8 kg

DRUGS (1)
  1. BEYFORTUS [Suspect]
     Active Substance: NIRSEVIMAB-ALIP
     Indication: Antiviral prophylaxis
     Route: 030
     Dates: start: 20251113, end: 20251113

REACTIONS (2)
  - Dose calculation error [None]
  - Incorrect dose administered [None]

NARRATIVE: CASE EVENT DATE: 20251113
